FAERS Safety Report 7703374-9 (Version None)
Quarter: 2011Q3

REPORT INFORMATION
  Report Type: 
  Country: None (occurrence: None)
  Receive Date: 20110817
  Receipt Date: 20110810
  Transmission Date: 20111222
  Serious: Yes (Hospitalization)
  Sender: FDA-Public Use
  Company Number: 2011SP037898

PATIENT
  Age: 60 Year
  Sex: Female
  Weight: 58 kg

DRUGS (5)
  1. MIANSERINE [Concomitant]
  2. PEG-INTRON [Suspect]
     Indication: HEPATITIS C
     Dates: start: 20091221, end: 20110706
  3. NICARDIPINE HCL [Concomitant]
  4. AMITRIPTYLINE HCL [Concomitant]
  5. RIBAVIRIN [Suspect]
     Indication: HEPATITIS C
     Dates: start: 20091221, end: 20110706

REACTIONS (5)
  - LYMPHADENOPATHY [None]
  - RENAL FAILURE ACUTE [None]
  - CONFUSIONAL STATE [None]
  - HEPATIC STEATOSIS [None]
  - DEHYDRATION [None]
